FAERS Safety Report 10052635 (Version 1)
Quarter: 2014Q1

REPORT INFORMATION
  Report Type: Spontaneous
  Country: JP (occurrence: None)
  Receive Date: 20140331
  Receipt Date: 20140331
  Transmission Date: 20141002
  Serious: Yes (Other)
  Sender: FDA-Public Use
  Company Number: 2014P1002602

PATIENT
  Age: 64 Year
  Sex: Male

DRUGS (3)
  1. DIAZEPAM [Suspect]
     Indication: UNEVALUABLE EVENT
  2. FLUNITRAZEPAM [Suspect]
     Indication: UNEVALUABLE EVENT
  3. BUPRENORPHINE [Suspect]
     Indication: UNEVALUABLE EVENT

REACTIONS (1)
  - Neuroleptic malignant syndrome [None]
